FAERS Safety Report 17326068 (Version 1)
Quarter: 2020Q1

REPORT INFORMATION
  Report Type: Spontaneous
  Country: FR (occurrence: FR)
  Receive Date: 20200127
  Receipt Date: 20200127
  Transmission Date: 20200409
  Serious: Yes (Hospitalization, Other)
  Sender: FDA-Public Use
  Company Number: FR-PFIZER INC-2020031465

PATIENT
  Age: 16 Year
  Sex: Female

DRUGS (1)
  1. ALPRAZOLAM. [Suspect]
     Active Substance: ALPRAZOLAM
     Dosage: 5 DF, SINGLE(5 TABLETS TAKEN ONCE, DOSAGE UNKNOWN)
     Route: 048
     Dates: start: 20190923, end: 20190923

REACTIONS (4)
  - Somnolence [Recovered/Resolved]
  - Off label use [Unknown]
  - Poisoning deliberate [Recovered/Resolved]
  - Product use issue [Unknown]

NARRATIVE: CASE EVENT DATE: 20190923
